FAERS Safety Report 17094242 (Version 1)
Quarter: 2019Q4

REPORT INFORMATION
  Report Type: Other
  Country: US (occurrence: US)
  Receive Date: 20191129
  Receipt Date: 20191129
  Transmission Date: 20200122
  Serious: Yes (Hospitalization)
  Sender: FDA-Public Use
  Company Number: US-AMAG PHARMACEUTICALS, INC.-AMAG201902684

PATIENT
  Age: 31 Year
  Sex: Female

DRUGS (1)
  1. MAKENA [Suspect]
     Active Substance: HYDROXYPROGESTERONE CAPROATE
     Indication: PREMATURE DELIVERY
     Dosage: 250MG/ML, WEEKLY
     Route: 058
     Dates: end: 20190414

REACTIONS (4)
  - Nausea [Unknown]
  - Insomnia [Unknown]
  - Anxiety [Unknown]
  - Depression [Unknown]

NARRATIVE: CASE EVENT DATE: 20190414
